FAERS Safety Report 8369552-3 (Version None)
Quarter: 2012Q2

REPORT INFORMATION
  Report Type: 
  Country: None (occurrence: None)
  Receive Date: 20120518
  Receipt Date: 20120515
  Transmission Date: 20120825
  Serious: Yes (Other)
  Sender: FDA-Public Use
  Company Number: CA-JNJFOC-20120510554

PATIENT
  Age: 65 Year
  Sex: Female
  Weight: 71.22 kg

DRUGS (2)
  1. CETIRIZINE HCL [Suspect]
     Route: 048
  2. CETIRIZINE HCL [Suspect]
     Indication: MULTIPLE ALLERGIES
     Route: 048
     Dates: start: 20120101, end: 20120101

REACTIONS (6)
  - DYSPNOEA [None]
  - RASH PRURITIC [None]
  - THROAT TIGHTNESS [None]
  - HEADACHE [None]
  - OVERDOSE [None]
  - ANAPHYLACTIC SHOCK [None]
